FAERS Safety Report 13447926 (Version 2)
Quarter: 2020Q1

REPORT INFORMATION
  Report Type: Spontaneous
  Country: US (occurrence: US)
  Receive Date: 20170417
  Receipt Date: 20200212
  Transmission Date: 20200409
  Serious: Yes (Other)
  Sender: FDA-Public Use
  Company Number: US-JNJFOC-20170416037

PATIENT
  Age: 59 Year
  Sex: Male

DRUGS (1)
  1. LEVAQUIN [Suspect]
     Active Substance: LEVOFLOXACIN
     Indication: PNEUMONIA
     Route: 048

REACTIONS (2)
  - Aortic aneurysm [Unknown]
  - Aortic dissection [Unknown]

NARRATIVE: CASE EVENT DATE: 20110208
